FAERS Safety Report 7405020-0 (Version None)
Quarter: 2011Q2

REPORT INFORMATION
  Report Type: 
  Country: None (occurrence: None)
  Receive Date: 20110411
  Receipt Date: 20110323
  Transmission Date: 20111010
  Serious: Yes (Hospitalization)
  Sender: FDA-Public Use
  Company Number: SE-ELI_LILLY_AND_COMPANY-SE201102001183

PATIENT
  Sex: Male

DRUGS (3)
  1. ANDROCUR /SCH/ [Concomitant]
     Dosage: 50 MG, UNK
  2. ZYPREXA [Suspect]
  3. EBIXA [Concomitant]

REACTIONS (2)
  - PULMONARY EMBOLISM [None]
  - FALL [None]
